FAERS Safety Report 20062003 (Version 1)
Quarter: 2021Q4

REPORT INFORMATION
  Report Type: Spontaneous
  Country: US (occurrence: None)
  Receive Date: 20211112
  Receipt Date: 20211112
  Transmission Date: 20220303
  Serious: Yes (Other)
  Sender: FDA-Public Use
  Company Number: US-ROCHE-2955416

PATIENT
  Age: 64 Year
  Sex: Female

DRUGS (12)
  1. RITUXAN [Suspect]
     Active Substance: RITUXIMAB
     Indication: Diffuse large B-cell lymphoma
     Route: 065
     Dates: end: 201101
  2. RITUXAN [Suspect]
     Active Substance: RITUXIMAB
     Route: 065
     Dates: start: 201512
  3. CYCLOPHOSPHAMIDE [Concomitant]
     Active Substance: CYCLOPHOSPHAMIDE
  4. DOXORUBICIN HYDROCHLORIDE [Concomitant]
     Active Substance: DOXORUBICIN HYDROCHLORIDE
  5. VINCRISTINE [Concomitant]
     Active Substance: VINCRISTINE
  6. PREDNISONE [Concomitant]
     Active Substance: PREDNISONE
  7. IFOSFAMIDE [Concomitant]
     Active Substance: IFOSFAMIDE
  8. CARBOPLATIN [Concomitant]
     Active Substance: CARBOPLATIN
  9. ETOPOSIDE [Concomitant]
     Active Substance: ETOPOSIDE
  10. GEMCITABINE [Concomitant]
     Active Substance: GEMCITABINE
     Dates: start: 201512
  11. DEXAMETHASONE [Concomitant]
     Active Substance: DEXAMETHASONE
     Dates: start: 201512
  12. CISPLATIN [Concomitant]
     Active Substance: CISPLATIN
     Dates: start: 201512

REACTIONS (4)
  - Diffuse large B-cell lymphoma recurrent [Unknown]
  - Sepsis [Unknown]
  - Hypotension [Unknown]
  - Infusion related reaction [Unknown]
